FAERS Safety Report 9519142 (Version 1)
Quarter: 2013Q1

REPORT INFORMATION
  Report Type: Spontaneous
  Country: US (occurrence: None)
  Receive Date: 20130305
  Receipt Date: 20130305
  Transmission Date: 20140127
  Serious: Yes (Other)
  Sender: FDA-Public Use
  Company Number: 163-21880-12101718

PATIENT
  Age: 89 Year
  Sex: Female
  Weight: 51.71 kg

DRUGS (18)
  1. REVLIMID [Suspect]
     Indication: PLASMA CELL MYELOMA
     Route: 048
     Dates: start: 20120406
  2. AMLODIPINE (AMLODIPINE) [Concomitant]
  3. ATENOLOL (ATENOLOL) [Concomitant]
  4. CENTRUM SILVER (CENTRUM SILVER) [Concomitant]
  5. CERA VE (PARAFFIN) [Concomitant]
  6. CITRACAL PLUS (CALCIUM CITRATE W/COLECALCIFEROL) [Concomitant]
  7. DEXAMETHASONE (DEXAMETHASONE) [Concomitant]
  8. FENOFIBRATE (FENOFIBRATE) (FENOFIBRATE) [Concomitant]
  9. FLONASE (FLUTICASONE PROPIONATE) (NASAL DROPS (INCLUDING NASAL SPRAY) [Concomitant]
  10. MIRALAX [Concomitant]
  11. NEXIUM (ESOMEPRAZOLE) (CAPSULES) [Concomitant]
  12. OSTEO BI-FLEX (OSTEO BI-FLEX) [Concomitant]
  13. PLAVIX (CLOPIDOGREL SULFATE) [Concomitant]
  14. SERTRALINE (SERTRALINE) [Concomitant]
  15. SIMVASTATIN (SIMVASTATIN) [Concomitant]
  16. SINGULAIR (MONTELUKAST SODIUM) TABLET [Concomitant]
  17. VITAMIN D (ERGOCALCIFEROL) [Concomitant]
  18. ZOMETA (ZOLEDRONIC ACID) (INJECTION) [Concomitant]

REACTIONS (2)
  - Contusion [None]
  - Haemorrhagic diathesis [None]
